FAERS Safety Report 7381632-8 (Version None)
Quarter: 2011Q1

REPORT INFORMATION
  Report Type: 
  Country: None (occurrence: None)
  Receive Date: 20110329
  Receipt Date: 20110325
  Transmission Date: 20110831
  Serious: Yes (Death, Hospitalization)
  Sender: FDA-Public Use
  Company Number: PHHO2011FR04633

PATIENT
  Sex: Male

DRUGS (18)
  1. CELLCEPT [Concomitant]
     Indication: RENAL TRANSPLANT
     Dosage: 500 MG, QID
     Route: 002
     Dates: start: 20110105
  2. INIPOMP [Concomitant]
  3. KARDEGIC [Concomitant]
  4. SODIUM BICARBONATE [Concomitant]
  5. LACTULOSE [Concomitant]
  6. LANTUS [Concomitant]
  7. NOVORAPID [Concomitant]
  8. ESIDRIX [Concomitant]
  9. BACTRIM [Concomitant]
  10. EPREX [Concomitant]
  11. ROVALCYTE [Concomitant]
  12. SANDIMMUNE [Suspect]
     Indication: RENAL TRANSPLANT
     Dosage: 0.5 MG, Q2H
     Route: 002
     Dates: start: 20110222
  13. CORTANCYL [Concomitant]
     Indication: RENAL TRANSPLANT
     Dosage: 5 MG, BID
     Route: 002
     Dates: start: 20110106
  14. MIRCERA [Concomitant]
  15. CALCIDIA [Concomitant]
  16. PHOSPHORUS [Concomitant]
  17. NIFEDIPINE [Concomitant]
  18. LASIX [Concomitant]

REACTIONS (2)
  - SUDDEN DEATH [None]
  - RENAL FAILURE ACUTE [None]
